FAERS Safety Report 4290547-3 (Version None)
Quarter: 2004Q1

REPORT INFORMATION
  Report Type: 
  Country: None (occurrence: None)
  Receive Date: 20040209
  Receipt Date: 20040206
  Transmission Date: 20041129
  Serious: Yes (Death)
  Sender: FDA-Public Use
  Company Number: USA-2003-0010043

PATIENT
  Age: 32 Year
  Sex: Male

DRUGS (1)
  1. OXYCODONE HCL [Suspect]
     Dosage: UNK

REACTIONS (4)
  - DRUG SCREEN POSITIVE [None]
  - GUN SHOT WOUND [None]
  - HEAD INJURY [None]
  - VICTIM OF HOMICIDE [None]
